FAERS Safety Report 4632741-5 (Version None)
Quarter: 2005Q2

REPORT INFORMATION
  Report Type: 
  Country: None (occurrence: None)
  Receive Date: 20050408
  Receipt Date: 20050408
  Transmission Date: 20051028
  Serious: Yes (Life-Threatening)
  Sender: FDA-Public Use
  Company Number: None

PATIENT
  Age: 27 Year
  Sex: Male
  Weight: 90.7194 kg

DRUGS (2)
  1. ZOLOFT [Suspect]
     Dates: start: 19950201, end: 19981228
  2. ZOLOFT [Suspect]

REACTIONS (7)
  - AGGRESSION [None]
  - BACK INJURY [None]
  - DEPRESSION [None]
  - PHYSICAL ASSAULT [None]
  - PSYCHOTIC DISORDER [None]
  - STRESS [None]
  - SUICIDAL IDEATION [None]
